FAERS Safety Report 25201617 (Version 2)
Quarter: 2025Q2

REPORT INFORMATION
  Report Type: Spontaneous
  Country: BR (occurrence: BR)
  Receive Date: 20250416
  Receipt Date: 20250603
  Transmission Date: 20250716
  Serious: Yes (Hospitalization)
  Sender: SANDOZ
  Company Number: BR-SANDOZ-SDZ2024BR028156

PATIENT
  Sex: Female

DRUGS (1)
  1. BUDESONIDE\FORMOTEROL FUMARATE [Suspect]
     Active Substance: BUDESONIDE\FORMOTEROL FUMARATE
     Indication: Asthma
     Route: 065
     Dates: start: 2013

REACTIONS (4)
  - Hospitalisation [Not Recovered/Not Resolved]
  - Dyspnoea [Unknown]
  - Illness [Not Recovered/Not Resolved]
  - Product availability issue [Unknown]
